FAERS Safety Report 16880615 (Version 1)
Quarter: 2019Q4

REPORT INFORMATION
  Report Type: Spontaneous
  Country: AT (occurrence: AT)
  Receive Date: 20191003
  Receipt Date: 20191003
  Transmission Date: 20200122
  Serious: Yes (Other)
  Sender: FDA-Public Use
  Company Number: AT-ASTRAZENECA-2019SF37624

PATIENT
  Age: 31 Year
  Sex: Female
  Weight: 75 kg

DRUGS (3)
  1. DICLOBENE [Concomitant]
     Active Substance: DICLOFENAC SODIUM
     Dosage: BUT NEVER AT THE SAME TIME AS ZOMIG
  2. MEXALEN 500 [Concomitant]
     Dosage: BUT NEVER AT THE SAME TIME AS ZOMIG
  3. ZOMIG [Suspect]
     Active Substance: ZOLMITRIPTAN
     Dosage: 2.5 MG UNKNOWN, TAKEN AT AROUND 9:30, SIDE EFFECTS OCCURRED PERCEIVED 15-30 MINUTES LATER
     Route: 048
     Dates: start: 20190813, end: 20190813

REACTIONS (8)
  - Visual field defect [Recovered/Resolved]
  - Lack of spontaneous speech [Recovered/Resolved]
  - Coordination abnormal [Recovered/Resolved]
  - Depressed level of consciousness [Recovered/Resolved]
  - Balance disorder [Recovered/Resolved]
  - Headache [Recovered/Resolved]
  - Hallucination [Recovered/Resolved]
  - Slow response to stimuli [Recovered/Resolved]

NARRATIVE: CASE EVENT DATE: 20190813
